FAERS Safety Report 20903154 (Version 1)
Quarter: 2022Q2

REPORT INFORMATION
  Report Type: Report from Study
  Country: US (occurrence: US)
  Receive Date: 20220601
  Receipt Date: 20220601
  Transmission Date: 20220721
  Serious: Yes (Life-Threatening)
  Sender: FDA-Public Use
  Company Number: US-GILEAD-2021-0543834

PATIENT
  Age: 65 Year
  Sex: Male
  Weight: 99.1 kg

DRUGS (13)
  1. REMDESIVIR [Suspect]
     Active Substance: REMDESIVIR
     Indication: COVID-19
     Dosage: 100 MG, QD
     Route: 042
     Dates: start: 20210714, end: 20210717
  2. NARSOPLIMAB [Suspect]
     Active Substance: NARSOPLIMAB
     Indication: COVID-19
     Dosage: BIW 370 MG
     Route: 042
     Dates: start: 20210710, end: 20210720
  3. LOVENOX [Concomitant]
     Active Substance: ENOXAPARIN SODIUM
     Indication: Prophylaxis
     Dosage: 100 MG
     Route: 058
     Dates: start: 20210721, end: 20210722
  4. EPINEPHRINE [Concomitant]
     Active Substance: EPINEPHRINE
     Dosage: 15-20 MCG/MIN
     Route: 042
     Dates: start: 20210723, end: 20210723
  5. AMIDATE [ETOMIDATE] [Concomitant]
     Indication: Sedation
     Dosage: 8 MG
     Route: 042
     Dates: start: 20210723, end: 20210723
  6. FENTANYL [Concomitant]
     Active Substance: FENTANYL
     Indication: Pain
     Dosage: 25 MCG/HR
     Route: 042
     Dates: start: 20210723, end: 20210723
  7. LASIX [Concomitant]
     Active Substance: FUROSEMIDE
     Indication: Polyuria
     Dosage: 20 MG
     Route: 042
     Dates: start: 20210723, end: 20210723
  8. NEO-SYNEPHRINE [Concomitant]
     Active Substance: PHENYLEPHRINE HYDROCHLORIDE
     Indication: Hypotension
     Dosage: UNK
     Dates: start: 20210723, end: 20210723
  9. HYDROCORTISONE SODIUM SUCCINATE [Concomitant]
     Active Substance: HYDROCORTISONE SODIUM SUCCINATE
     Dosage: 100 MG
     Route: 042
     Dates: start: 20210723, end: 20210723
  10. LEVOPHED [Concomitant]
     Active Substance: NOREPINEPHRINE BITARTRATE
     Dosage: 15-30 MCG/MIN
     Route: 042
     Dates: start: 20210723, end: 20210723
  11. DIPRIVAN [Concomitant]
     Active Substance: PROPOFOL
     Dosage: 30 MCG/KG/MIN
     Route: 042
     Dates: start: 20210723, end: 20210723
  12. VASOPRESSIN [Concomitant]
     Active Substance: VASOPRESSIN
     Dosage: 0.03-0.04 UNITS/MIN
     Route: 042
     Dates: start: 20210723, end: 20210723
  13. DEXAMETHASONE [Concomitant]
     Active Substance: DEXAMETHASONE

REACTIONS (1)
  - Hypotension [Not Recovered/Not Resolved]

NARRATIVE: CASE EVENT DATE: 20210723
